FAERS Safety Report 5709762-4 (Version None)
Quarter: 2008Q2

REPORT INFORMATION
  Report Type: 
  Country: None (occurrence: None)
  Receive Date: 20080418
  Receipt Date: 20080407
  Transmission Date: 20081010
  Serious: Yes (Other)
  Sender: FDA-Public Use
  Company Number: GB-ROCHE-559429

PATIENT
  Age: 54 Year
  Sex: Male

DRUGS (2)
  1. DIAZEPAM [Suspect]
     Indication: SEDATION
     Dosage: 5-10MG INTRAVENOUSLY, WITH FURTHER ALIQUOTS OF 5-1O MG EACH MINUTE, UNTIL ADEQUATE SEDATION.
     Route: 042
  2. ASPIRIN [Concomitant]

REACTIONS (1)
  - TRANSIENT ISCHAEMIC ATTACK [None]
